FAERS Safety Report 15332233 (Version 1)
Quarter: 2018Q3

REPORT INFORMATION
  Report Type: Spontaneous
  Country: US (occurrence: US)
  Receive Date: 20180829
  Receipt Date: 20180829
  Transmission Date: 20181010
  Serious: No
  Sender: FDA-Public Use
  Company Number: US-BIOVERATIV-2018BV000595

PATIENT
  Sex: Male
  Weight: 130 kg

DRUGS (1)
  1. ALPROLIX [Suspect]
     Active Substance: EFTRENONACOG ALFA
     Indication: FACTOR IX DEFICIENCY
     Route: 065
     Dates: start: 201803

REACTIONS (4)
  - Intentional product misuse [Recovered/Resolved]
  - Haemorrhage [Recovered/Resolved]
  - Gait inability [Unknown]
  - Pain [Unknown]

NARRATIVE: CASE EVENT DATE: 2018
